FAERS Safety Report 15290668 (Version 1)
Quarter: 2018Q3

REPORT INFORMATION
  Report Type: Spontaneous
  Country: PT (occurrence: PT)
  Receive Date: 20180817
  Receipt Date: 20180817
  Transmission Date: 20181010
  Serious: Yes (Death, Hospitalization)
  Sender: FDA-Public Use
  Company Number: PT-SA-2018SA156229

PATIENT
  Sex: Female

DRUGS (1)
  1. LOVENOX [Suspect]
     Active Substance: ENOXAPARIN SODIUM
     Dosage: UNK UNK, UNK
     Route: 058

REACTIONS (4)
  - Shock haemorrhagic [Recovered/Resolved]
  - Haemorrhage [Unknown]
  - Abdominal wall haematoma [Unknown]
  - Pneumonia [Fatal]
